FAERS Safety Report 9055929 (Version 1)
Quarter: 2013Q1

REPORT INFORMATION
  Report Type: Spontaneous
  Country: US (occurrence: US)
  Receive Date: 20130206
  Receipt Date: 20130206
  Transmission Date: 20140127
  Serious: No
  Sender: FDA-Public Use
  Company Number: US-ALLERGAN-1200407US

PATIENT
  Sex: Female

DRUGS (2)
  1. RESTASIS [Suspect]
     Indication: DRY EYE
     Dosage: 2 GTT, BID
     Route: 047
     Dates: start: 2011, end: 20120107
  2. TOBRADEX [Suspect]
     Indication: ULCERATIVE KERATITIS
     Dosage: UNK

REACTIONS (4)
  - Swelling face [Unknown]
  - Erythema of eyelid [Unknown]
  - Scleral hyperaemia [Unknown]
  - Drug ineffective [Unknown]
